FAERS Safety Report 23296514 (Version 1)
Quarter: 2023Q4

REPORT INFORMATION
  Report Type: Spontaneous
  Country: US (occurrence: US)
  Receive Date: 20231214
  Receipt Date: 20231214
  Transmission Date: 20240110
  Serious: Yes (Other)
  Sender: FDA-Public Use
  Company Number: US-009507513-2312USA004411

PATIENT
  Age: 72 Year
  Sex: Male

DRUGS (2)
  1. KEYTRUDA [Suspect]
     Active Substance: PEMBROLIZUMAB
  2. LENVATINIB MESYLATE [Suspect]
     Active Substance: LENVATINIB MESYLATE
     Indication: Neoplasm malignant
     Dosage: 20 MILLIGRAM, QD
     Route: 048

REACTIONS (4)
  - Diabetes mellitus [Unknown]
  - Fatigue [Recovering/Resolving]
  - Dysphonia [Recovering/Resolving]
  - Tongue discomfort [Recovering/Resolving]
